FAERS Safety Report 8199526-7 (Version None)
Quarter: 2012Q1

REPORT INFORMATION
  Report Type: 
  Country: None (occurrence: None)
  Receive Date: 20120310
  Receipt Date: 20120306
  Transmission Date: 20120608
  Serious: No
  Sender: FDA-Public Use
  Company Number: US-PFIZER INC-2012060252

PATIENT
  Sex: Female
  Weight: 77.098 kg

DRUGS (4)
  1. CYMBALTA [Concomitant]
     Dosage: UNK
  2. XANAX [Suspect]
     Indication: SLEEP DISORDER
     Dosage: 1 MG, 3X/DAY
     Route: 048
  3. NEURONTIN [Suspect]
     Indication: NEURALGIA
     Dosage: 300 MG, 3X/DAY
     Route: 048
     Dates: start: 20050101, end: 20120201
  4. XANAX [Suspect]
     Indication: STRESS

REACTIONS (3)
  - NEURALGIA [None]
  - MALAISE [None]
  - HEPATIC ENZYME INCREASED [None]
